FAERS Safety Report 25107586 (Version 3)
Quarter: 2025Q3

REPORT INFORMATION
  Report Type: Report from Study
  Country: US (occurrence: US)
  Receive Date: 20250321
  Receipt Date: 20250903
  Transmission Date: 20251021
  Serious: Yes (Other)
  Sender: ABBVIE
  Company Number: US-ABBVIE-6179696

PATIENT
  Age: 63 Year
  Sex: Female
  Weight: 77.564 kg

DRUGS (7)
  1. HUMIRA [Suspect]
     Active Substance: ADALIMUMAB
     Indication: Psoriasis
     Dosage: STRENGTH 40 MILLIGRAM, CITRATE FREE
     Route: 058
     Dates: start: 2018
  2. HUMIRA [Suspect]
     Active Substance: ADALIMUMAB
     Indication: Psoriatic arthropathy
     Dosage: STRENGTH 40 MILLIGRAM, CITRATE FREE
     Route: 058
     Dates: end: 202306
  3. HUMIRA [Suspect]
     Active Substance: ADALIMUMAB
     Route: 058
     Dates: end: 20250311
  4. ROSUVASTATIN [Concomitant]
     Active Substance: ROSUVASTATIN
     Indication: Arterial occlusive disease
  5. ASPIRIN [Concomitant]
     Active Substance: ASPIRIN
     Indication: Anticoagulant therapy
  6. LOSARTAN [Concomitant]
     Active Substance: LOSARTAN
     Indication: Hypertension
  7. VENLAFAXINE [Concomitant]
     Active Substance: VENLAFAXINE HYDROCHLORIDE
     Indication: Depression

REACTIONS (11)
  - Skin lesion [Recovering/Resolving]
  - Stress [Recovered/Resolved]
  - Psoriasis [Unknown]
  - Invasive ductal breast carcinoma [Recovering/Resolving]
  - Wound infection staphylococcal [Recovered/Resolved]
  - Invasive lobular breast carcinoma [Recovering/Resolving]
  - Basal cell carcinoma [Recovered/Resolved]
  - Basal cell carcinoma [Recovered/Resolved]
  - Medical device site haemorrhage [Recovered/Resolved]
  - Seroma [Recovered/Resolved]
  - Drug ineffective [Not Recovered/Not Resolved]

NARRATIVE: CASE EVENT DATE: 20200304
